FAERS Safety Report 13061830 (Version 1)
Quarter: 2016Q4

REPORT INFORMATION
  Report Type: Spontaneous
  Country: IT (occurrence: IT)
  Receive Date: 20161226
  Receipt Date: 20161226
  Transmission Date: 20170207
  Serious: Yes (Other)
  Sender: FDA-Public Use
  Company Number: IT-AUROBINDO-AUR-APL-2016-15596

PATIENT
  Age: 60 Year
  Sex: Female

DRUGS (1)
  1. DULOXETINE 60 MG [Suspect]
     Active Substance: DULOXETINE
     Indication: DEPRESSION
     Dosage: 60 MG, DAILY
     Route: 048
     Dates: start: 20161028, end: 20161030

REACTIONS (3)
  - Nausea [Recovered/Resolved]
  - Dyspnoea [Recovered/Resolved]
  - Asthenia [Recovered/Resolved]

NARRATIVE: CASE EVENT DATE: 20161029
